FAERS Safety Report 11624521 (Version 1)
Quarter: 2015Q4

REPORT INFORMATION
  Report Type: Spontaneous
  Country: CA (occurrence: CA)
  Receive Date: 20151013
  Receipt Date: 20151013
  Transmission Date: 20160304
  Serious: Yes (Disabling)
  Sender: FDA-Public Use
  Company Number: CA-TEVA-600943ACC

PATIENT
  Age: 53 Year
  Sex: Female
  Weight: 85 kg

DRUGS (3)
  1. ZOPICLONE [Concomitant]
     Active Substance: ZOPICLONE
  2. ONDANSETRON [Concomitant]
     Active Substance: ONDANSETRON
  3. ANASTROZOLE. [Suspect]
     Active Substance: ANASTROZOLE
     Indication: BREAST CANCER
     Dosage: 1 MILLIGRAM DAILY;

REACTIONS (2)
  - Drug intolerance [Recovered/Resolved]
  - Product substitution issue [Recovered/Resolved]
